FAERS Safety Report 8048305 (Version 4)
Quarter: 2018Q3

REPORT INFORMATION
  Report Type: Spontaneous
  Country: FR (occurrence: FR)
  Receive Date: 20110721
  Receipt Date: 20180906
  Transmission Date: 20181010
  Serious: Yes (Disabling, Other)
  Sender: FDA-Public Use
  Company Number: FR-PFIZER INC-2011161640

PATIENT
  Age: 64 Year
  Sex: Male
  Weight: 52 kg

DRUGS (3)
  1. INEXIUM [Concomitant]
     Active Substance: ESOMEPRAZOLE
     Dosage: UNK
     Route: 048
  2. TAMSULOSIN [Concomitant]
     Active Substance: TAMSULOSIN
     Dosage: UNK
     Route: 048
  3. TAHOR [Suspect]
     Active Substance: ATORVASTATIN CALCIUM
     Indication: HYPERCHOLESTEROLAEMIA
     Dosage: 10 MG, DAILY
     Route: 048
     Dates: start: 20090803, end: 20110101

REACTIONS (2)
  - Organising pneumonia [Recovered/Resolved]
  - Procedural complication [Unknown]

NARRATIVE: CASE EVENT DATE: 20101231
